FAERS Safety Report 7110143-X (Version None)
Quarter: 2010Q4

REPORT INFORMATION
  Report Type: 
  Country: None (occurrence: None)
  Receive Date: 20101118
  Receipt Date: 20101112
  Transmission Date: 20110411
  Serious: Yes (Hospitalization)
  Sender: FDA-Public Use
  Company Number: IT-PFIZER INC-2010148777

PATIENT
  Age: 56 Year
  Sex: Male

DRUGS (4)
  1. TORVAST [Suspect]
     Dosage: 20 MG, 1X/DAY
     Route: 048
     Dates: start: 20091211, end: 20100307
  2. ASPIRIN [Suspect]
     Indication: TACHYCARDIA
     Dosage: UNK
     Route: 048
     Dates: start: 20091211, end: 20100307
  3. ANTRA [Suspect]
     Dosage: 20 MG, 1X/DAY
     Route: 048
     Dates: start: 20091211, end: 20100307
  4. ISOPTIN [Concomitant]
     Dosage: 240 MG, UNK
     Route: 048
     Dates: start: 20091211

REACTIONS (1)
  - RASH [None]
